FAERS Safety Report 4463212-7 (Version None)
Quarter: 2004Q3

REPORT INFORMATION
  Report Type: 
  Country: None (occurrence: None)
  Receive Date: 20040930
  Receipt Date: 20040922
  Transmission Date: 20050211
  Serious: Yes (Hospitalization)
  Sender: FDA-Public Use
  Company Number: PL-ROCHE-381295

PATIENT
  Age: 23 Year
  Sex: Female
  Weight: 57 kg

DRUGS (3)
  1. PEGASYS [Suspect]
     Indication: HEPATITIS C
     Route: 065
     Dates: start: 20040415
  2. COPEGUS [Suspect]
     Indication: HEPATITIS C
     Route: 065
     Dates: start: 20040415
  3. SUMAMED [Concomitant]
     Indication: BRONCHITIS
     Dates: start: 20040815, end: 20040815

REACTIONS (14)
  - ABDOMINAL PAIN [None]
  - AFFECTIVE DISORDER [None]
  - ALOPECIA [None]
  - APTYALISM [None]
  - ASTHENIA [None]
  - DEPRESSED MOOD [None]
  - DIZZINESS [None]
  - HAEMATOCHEZIA [None]
  - HEADACHE [None]
  - MELAENA [None]
  - NAUSEA [None]
  - SYNCOPE [None]
  - THYROIDITIS [None]
  - WEIGHT DECREASED [None]
